FAERS Safety Report 9648548 (Version 2)
Quarter: 2013Q4

REPORT INFORMATION
  Report Type: Spontaneous
  Country: US (occurrence: US)
  Receive Date: 20131028
  Receipt Date: 20131028
  Transmission Date: 20140711
  Serious: Yes (Hospitalization)
  Sender: FDA-Public Use
  Company Number: US-TAKEDA-TPA2012A09780

PATIENT
  Age: 50 Year
  Sex: Male
  Weight: 83.9 kg

DRUGS (14)
  1. OMONTYS [Suspect]
     Indication: NEPHROGENIC ANAEMIA
     Route: 042
     Dates: start: 20121114, end: 20121114
  2. OMONTYS [Suspect]
     Route: 042
     Dates: start: 20120926, end: 20120926
  3. OMONTYS [Suspect]
     Route: 042
     Dates: start: 20120829, end: 20120829
  4. OMONTYS [Suspect]
     Route: 042
     Dates: start: 20120725, end: 20120725
  5. FLOMAX [Concomitant]
  6. PHOSLO [Concomitant]
  7. LABETALOL [Concomitant]
  8. MINOXIDIL [Concomitant]
  9. NEPHRO-VITE [Concomitant]
  10. ASPIRIN [Concomitant]
  11. ZEMPLAR [Concomitant]
  12. PROTONIX [Concomitant]
  13. HEPARIN [Concomitant]
  14. FERRLECIT [Concomitant]

REACTIONS (12)
  - Anaemia [Recovered/Resolved]
  - Headache [Recovered/Resolved]
  - Asthenia [Recovered/Resolved]
  - Fatigue [Recovered/Resolved]
  - Dyspnoea [Recovered/Resolved]
  - Flank pain [Recovered/Resolved]
  - Musculoskeletal pain [Recovered/Resolved]
  - Pain in extremity [Recovered/Resolved]
  - Joint stiffness [Recovered/Resolved]
  - Hypokinesia [Recovered/Resolved]
  - Muscle spasms [Recovered/Resolved]
  - Back pain [Recovered/Resolved]
